FAERS Safety Report 6125622-1 (Version None)
Quarter: 2009Q1

REPORT INFORMATION
  Report Type: 
  Country: None (occurrence: None)
  Receive Date: 20090319
  Receipt Date: 20090319
  Transmission Date: 20090719
  Serious: No
  Sender: FDA-Public Use
  Company Number: None

PATIENT
  Sex: Male
  Weight: 133.8111 kg

DRUGS (1)
  1. LANTUS [Suspect]
     Indication: TYPE 2 DIABETES MELLITUS
     Dosage: 85 UNITS DAILY AT BEDTIME SQ, CHRONIC
     Route: 058

REACTIONS (2)
  - FEAR [None]
  - HYPOGLYCAEMIA [None]
